FAERS Safety Report 21922214 (Version 5)
Quarter: 2023Q4

REPORT INFORMATION
  Report Type: Spontaneous
  Country: US (occurrence: US)
  Receive Date: 20230128
  Receipt Date: 20231214
  Transmission Date: 20240109
  Serious: Yes (Hospitalization, Other)
  Sender: FDA-Public Use
  Company Number: US-ABBVIE-4285937

PATIENT
  Age: 64 Year
  Sex: Male
  Weight: 94 kg

DRUGS (11)
  1. IMBRUVICA [Suspect]
     Active Substance: IBRUTINIB
     Indication: Chronic lymphocytic leukaemia
     Route: 048
     Dates: start: 20220526
  2. IMBRUVICA [Suspect]
     Active Substance: IBRUTINIB
     Indication: Chronic lymphocytic leukaemia
     Dosage: LAST  ADMIN DATE 2022
     Route: 048
     Dates: start: 20220323
  3. IMBRUVICA [Suspect]
     Active Substance: IBRUTINIB
     Indication: Chronic lymphocytic leukaemia
     Dosage: TAKE 1 TABLET (420 MG TOTAL) BY MOUTH DAILY FOR CHRONIC LYMPHOCYTIC LEUKEMIA SWALLOW WHOLE. DO NO...
     Route: 048
     Dates: start: 20230613
  4. ASPIRIN [Concomitant]
     Active Substance: ASPIRIN
     Indication: Product used for unknown indication
  5. VITAMIN D [Concomitant]
     Active Substance: VITAMIN D NOS
     Indication: Product used for unknown indication
     Dosage: TAKE 1,000 UNITS BY MOUTH DALLY
  6. FLONASE [Concomitant]
     Active Substance: FLUTICASONE PROPIONATE
     Indication: Product used for unknown indication
     Dosage: 50 MCG/ACT NASAL SPRAY ?1 SPRAY BY NASAL ROUTE DAILY AS NEEDED 50 MCG
     Route: 045
  7. ALPRAZOLAM [Concomitant]
     Active Substance: ALPRAZOLAM
     Indication: Product used for unknown indication
     Dosage: TIME INTERVAL: AS NECESSARY: 3 TIMES A DAY
  8. LISINOPRIL [Concomitant]
     Active Substance: LISINOPRIL
     Indication: Product used for unknown indication
  9. PRAVASTATIN [Concomitant]
     Active Substance: PRAVASTATIN
     Indication: Product used for unknown indication
  10. FLONASE [Concomitant]
     Active Substance: FLUTICASONE PROPIONATE
     Indication: Product used for unknown indication
     Dosage: TIME INTERVAL: AS NECESSARY: DAILY
  11. HALOBETASOL [Concomitant]
     Active Substance: HALOBETASOL
     Indication: Product used for unknown indication
     Dosage: TIME INTERVAL: AS NECESSARY: 2 TIMES PER DAY

REACTIONS (7)
  - Blood calcium decreased [Unknown]
  - Atrial fibrillation [Unknown]
  - Palpitations [Unknown]
  - Nail disorder [Unknown]
  - Limb discomfort [Unknown]
  - Fungal infection [Unknown]
  - Hospitalisation [Unknown]

NARRATIVE: CASE EVENT DATE: 20230608
